FAERS Safety Report 18893149 (Version 4)
Quarter: 2021Q1

REPORT INFORMATION
  Report Type: Report from Study
  Country: US (occurrence: US)
  Receive Date: 20210215
  Receipt Date: 20210327
  Transmission Date: 20210420
  Serious: Yes (Hospitalization, Other)
  Sender: FDA-Public Use
  Company Number: NVSC2021US029510

PATIENT
  Sex: Female

DRUGS (3)
  1. ENTRESTO [Suspect]
     Active Substance: SACUBITRIL\VALSARTAN
     Dosage: 0.5 DF, UNKNOWN
     Route: 048
  2. ENTRESTO [Suspect]
     Active Substance: SACUBITRIL\VALSARTAN
     Dosage: 1 DF, BID
     Route: 048
  3. ENTRESTO [Suspect]
     Active Substance: SACUBITRIL\VALSARTAN
     Indication: CARDIAC FAILURE
     Dosage: 50 MG, BID (24/26 MG)
     Route: 048
     Dates: start: 20210129

REACTIONS (12)
  - Fatigue [Unknown]
  - Circulatory collapse [Unknown]
  - Weight decreased [Unknown]
  - Hypotension [Recovering/Resolving]
  - Malaise [Unknown]
  - Heart rate decreased [Recovering/Resolving]
  - Wrong technique in product usage process [Recovering/Resolving]
  - Chest pain [Unknown]
  - Ventricular extrasystoles [Unknown]
  - Dyspnoea [Unknown]
  - Swelling [Unknown]
  - Fluid retention [Not Recovered/Not Resolved]

NARRATIVE: CASE EVENT DATE: 20210202
